FAERS Safety Report 9790091 (Version 1)
Quarter: 2013Q4

REPORT INFORMATION
  Report Type: Spontaneous
  Country: US (occurrence: None)
  Receive Date: 20131230
  Receipt Date: 20131230
  Transmission Date: 20140711
  Serious: Yes (Other)
  Sender: FDA-Public Use
  Company Number: None

PATIENT
  Sex: Female
  Weight: 85.28 kg

DRUGS (3)
  1. PEG INTERFERON [Suspect]
     Indication: CHRONIC HEPATITIS C
     Dates: start: 201304
  2. RIBAVIRIN [Suspect]
     Route: 048
     Dates: start: 201308
  3. ROGAINE [Suspect]
     Dates: start: 20130710

REACTIONS (3)
  - Alopecia [None]
  - Tooth disorder [None]
  - Gingival disorder [None]
